FAERS Safety Report 9165767 (Version 3)
Quarter: 2014Q2

REPORT INFORMATION
  Report Type: Spontaneous
  Country: US (occurrence: US)
  Receive Date: 20130315
  Receipt Date: 20140424
  Transmission Date: 20141212
  Serious: No
  Sender: FDA-Public Use
  Company Number: US-009507513-1303USA006771

PATIENT
  Sex: Male
  Weight: 91.16 kg

DRUGS (1)
  1. PROPECIA [Suspect]
     Indication: ALOPECIA
     Dosage: 1 MG, QD
     Route: 048
     Dates: start: 20020102, end: 2012

REACTIONS (10)
  - Anxiety [Unknown]
  - Major depression [Unknown]
  - Chest pain [Unknown]
  - Folliculitis [Unknown]
  - Neck pain [Unknown]
  - Cervical spinal stenosis [Unknown]
  - Benign prostatic hyperplasia [Unknown]
  - Sexual dysfunction [Not Recovered/Not Resolved]
  - Erectile dysfunction [Not Recovered/Not Resolved]
  - Libido decreased [Unknown]
